FAERS Safety Report 15663304 (Version 5)
Quarter: 2019Q1

REPORT INFORMATION
  Report Type: Spontaneous
  Country: JP (occurrence: JP)
  Receive Date: 20181128
  Receipt Date: 20190213
  Transmission Date: 20190417
  Serious: Yes (Other)
  Sender: FDA-Public Use
  Company Number: JP-TEVA-2018-JP-979408

PATIENT
  Age: 82 Year
  Sex: Male

DRUGS (3)
  1. BENDAMUSTINE HYDROCHLORIDE. [Suspect]
     Active Substance: BENDAMUSTINE HYDROCHLORIDE
     Indication: MANTLE CELL LYMPHOMA
     Dosage: CYCLIC
     Route: 042
  2. RITUXIMAB. [Concomitant]
     Active Substance: RITUXIMAB
     Indication: MANTLE CELL LYMPHOMA
     Dosage: UNK UNK, UNKNOWN FREQ.
     Route: 041
  3. IBRITUMOMAB TIUXETAN [Concomitant]
     Active Substance: IBRITUMOMAB TIUXETAN
     Indication: MANTLE CELL LYMPHOMA
     Route: 041

REACTIONS (1)
  - Chronic obstructive pulmonary disease [Unknown]

NARRATIVE: CASE EVENT DATE: 20140912
